FAERS Safety Report 12583650 (Version 2)
Quarter: 2016Q3

REPORT INFORMATION
  Report Type: Spontaneous
  Country: US (occurrence: US)
  Receive Date: 20160722
  Receipt Date: 20160728
  Transmission Date: 20161109
  Serious: Yes (Other)
  Sender: FDA-Public Use
  Company Number: US-TEVA-675228USA

PATIENT
  Sex: Female

DRUGS (1)
  1. ZECUITY [Suspect]
     Active Substance: SUMATRIPTAN SUCCINATE
     Route: 062

REACTIONS (6)
  - Application site discolouration [Recovered/Resolved]
  - Application site erythema [Recovered/Resolved]
  - Application site vesicles [Unknown]
  - Application site paraesthesia [Recovered/Resolved]
  - Application site scar [Unknown]
  - Application site pruritus [Recovered/Resolved]
